FAERS Safety Report 21804373 (Version 1)
Quarter: 2023Q1

REPORT INFORMATION
  Report Type: Spontaneous
  Country: IN (occurrence: IN)
  Receive Date: 20230102
  Receipt Date: 20230102
  Transmission Date: 20230417
  Serious: Yes (Hospitalization, Disabling, Other)
  Sender: FDA-Public Use
  Company Number: IN-CADILA HEALTHCARE LIMITED-IN-ZYDUS-086324

PATIENT

DRUGS (2)
  1. DICLOFENAC [Suspect]
     Active Substance: DICLOFENAC
     Indication: Dysuria
     Dosage: UNK
     Route: 013
  2. DICLOFENAC [Suspect]
     Active Substance: DICLOFENAC
     Indication: Abdominal pain

REACTIONS (3)
  - Peripheral ischaemia [Unknown]
  - Gangrene [Unknown]
  - Medication error [Unknown]
